FAERS Safety Report 7755242-4 (Version None)
Quarter: 2011Q3

REPORT INFORMATION
  Report Type: 
  Country: None (occurrence: None)
  Receive Date: 20110913
  Receipt Date: 20110901
  Transmission Date: 20111222
  Serious: Yes (Hospitalization)
  Sender: FDA-Public Use
  Company Number: 2011S1001259

PATIENT
  Sex: Female

DRUGS (1)
  1. ALIPZA (PITAVASTATIN) [Suspect]
     Indication: HYPERCHOLESTEROLAEMIA
     Dosage: 1 DF;PO
     Route: 048

REACTIONS (1)
  - HYPERSENSITIVITY [None]
